FAERS Safety Report 7518562-4 (Version None)
Quarter: 2011Q2

REPORT INFORMATION
  Report Type: 
  Country: None (occurrence: None)
  Receive Date: 20110601
  Receipt Date: 20110601
  Transmission Date: 20111010
  Serious: Yes (Life-Threatening, Disabling)
  Sender: FDA-Public Use
  Company Number: None

PATIENT
  Age: 58 Year
  Sex: Male
  Weight: 77.1115 kg

DRUGS (1)
  1. AMLODIPINE [Suspect]
     Indication: HYPERTENSION
     Dosage: 5MG-TAB 1 PER DAY PO
     Route: 048
     Dates: start: 20050307, end: 20110527

REACTIONS (3)
  - DIZZINESS [None]
  - DYSPNOEA [None]
  - PALPITATIONS [None]
